FAERS Safety Report 4585627-9 (Version None)
Quarter: 2005Q1

REPORT INFORMATION
  Report Type: 
  Country: None (occurrence: None)
  Receive Date: 20050217
  Receipt Date: 20041203
  Transmission Date: 20050727
  Serious: Yes (Hospitalization, Other)
  Sender: FDA-Public Use
  Company Number: US-MERCK-0412USA00638

PATIENT
  Age: 69 Year
  Sex: Female
  Weight: 88 kg

DRUGS (22)
  1. ASPIRIN [Concomitant]
     Route: 065
  2. SEREVENT [Concomitant]
     Route: 065
  3. COMBIVENT [Concomitant]
     Route: 065
  4. CLARITIN [Concomitant]
     Route: 065
  5. VIOXX [Suspect]
     Indication: FIBROMYALGIA
     Route: 048
     Dates: start: 20000302, end: 20000323
  6. VIOXX [Suspect]
     Route: 048
     Dates: start: 20000801, end: 20030101
  7. VIOXX [Suspect]
     Route: 048
     Dates: start: 20030120, end: 20030522
  8. VIOXX [Suspect]
     Route: 048
     Dates: start: 20030821
  9. VIOXX [Suspect]
     Route: 048
     Dates: end: 20040902
  10. VIOXX [Suspect]
     Route: 048
     Dates: end: 20030602
  11. VIOXX [Suspect]
     Indication: OSTEOARTHRITIS
     Route: 048
     Dates: start: 20000302, end: 20000323
  12. VIOXX [Suspect]
     Route: 048
     Dates: start: 20000801, end: 20030101
  13. VIOXX [Suspect]
     Route: 048
     Dates: start: 20030120, end: 20030522
  14. VIOXX [Suspect]
     Route: 048
     Dates: start: 20030821
  15. VIOXX [Suspect]
     Route: 048
     Dates: end: 20040902
  16. VIOXX [Suspect]
     Route: 048
     Dates: end: 20030602
  17. ACCOLATE [Concomitant]
     Route: 065
  18. PREMPRO [Concomitant]
     Route: 065
  19. LIPITOR [Concomitant]
     Route: 065
  20. FLOVENT [Concomitant]
     Route: 065
  21. LOPID [Concomitant]
     Route: 065
  22. NEXIUM [Concomitant]
     Route: 065

REACTIONS (57)
  - ABDOMINAL DISTENSION [None]
  - ABDOMINAL WALL MASS [None]
  - ACQUIRED OESOPHAGEAL WEB [None]
  - ANTIBODY TEST ABNORMAL [None]
  - ASTHMA [None]
  - ATRIAL FIBRILLATION [None]
  - BLOOD PRESSURE INCREASED [None]
  - BURSITIS [None]
  - CARDIAC DISORDER [None]
  - CARDIAC FAILURE CONGESTIVE [None]
  - CARDIOMEGALY [None]
  - CATARACT [None]
  - CHEST PAIN [None]
  - CHRONIC OBSTRUCTIVE PULMONARY DISEASE [None]
  - CONSTIPATION [None]
  - COUGH [None]
  - DEAFNESS [None]
  - DEEP VEIN THROMBOSIS [None]
  - DEPRESSION [None]
  - DYSPNOEA [None]
  - EMPHYSEMA [None]
  - ERUCTATION [None]
  - EXTRASYSTOLES [None]
  - FALL [None]
  - HEADACHE [None]
  - HYPERCALCAEMIA [None]
  - HYPERPARATHYROIDISM [None]
  - HYPERPROTEINAEMIA [None]
  - HYPERTENSION [None]
  - HYPOGLYCAEMIA [None]
  - INSOMNIA [None]
  - LIPOMA [None]
  - LUNG CONSOLIDATION [None]
  - LUNG NEOPLASM [None]
  - MEMORY IMPAIRMENT [None]
  - MUSCLE SPASMS [None]
  - MUSCULOSKELETAL DISCOMFORT [None]
  - NON-CARDIAC CHEST PAIN [None]
  - OEDEMA [None]
  - OEDEMA PERIPHERAL [None]
  - OSTEOPENIA [None]
  - PAIN IN EXTREMITY [None]
  - PALPITATIONS [None]
  - PERICARDIAL EFFUSION [None]
  - POSTNASAL DRIP [None]
  - PRURITUS [None]
  - RASH PRURITIC [None]
  - RENAL CYST [None]
  - RHINORRHOEA [None]
  - SCIATICA [None]
  - SINUS CONGESTION [None]
  - SINUS DISORDER [None]
  - STRESS INCONTINENCE [None]
  - SUPRAVENTRICULAR EXTRASYSTOLES [None]
  - VENOUS INSUFFICIENCY [None]
  - VENTRICULAR EXTRASYSTOLES [None]
  - WRIST FRACTURE [None]
